FAERS Safety Report 10716701 (Version 1)
Quarter: 2015Q1

REPORT INFORMATION
  Report Type: Spontaneous
  Country: US (occurrence: None)
  Receive Date: 20150115
  Receipt Date: 20150115
  Transmission Date: 20150721
  Serious: No
  Sender: FDA-Public Use
  Company Number: None

PATIENT
  Age: 26 Year
  Sex: Female
  Weight: 86.18 kg

DRUGS (1)
  1. TAMIFLU [Suspect]
     Active Substance: OSELTAMIVIR PHOSPHATE
     Indication: ANTIVIRAL PROPHYLAXIS
     Dosage: 10 ONCE DAILY TAKEN BY MOUTH
     Route: 048
     Dates: start: 20150112, end: 20150114

REACTIONS (3)
  - Diarrhoea [None]
  - Abdominal pain [None]
  - Hallucination [None]

NARRATIVE: CASE EVENT DATE: 20150114
